FAERS Safety Report 5016224-9 (Version None)
Quarter: 2006Q2

REPORT INFORMATION
  Report Type: 
  Country: None (occurrence: None)
  Receive Date: 20060414
  Receipt Date: 20060124
  Transmission Date: 20061013
  Serious: No
  Sender: FDA-Public Use
  Company Number: 2006SP000414

PATIENT
  Age: 75 Year
  Sex: Female
  Weight: 72.5755 kg

DRUGS (5)
  1. LUNESTA [Suspect]
     Indication: INSOMNIA
     Dosage: 3MG; HS; ORAL
     Route: 048
     Dates: start: 20051123, end: 20060101
  2. VITAMINS [Concomitant]
  3. CALCIUM GLUCONATE [Concomitant]
  4. BETOPTIC [Concomitant]
  5. AMBIEN [Concomitant]

REACTIONS (1)
  - INSOMNIA [None]
